FAERS Safety Report 16737154 (Version 2)
Quarter: 2020Q1

REPORT INFORMATION
  Report Type: Report from Study
  Country: TW (occurrence: TW)
  Receive Date: 20190823
  Receipt Date: 20200211
  Transmission Date: 20200409
  Serious: Yes (Death, Hospitalization, Other)
  Sender: FDA-Public Use
  Company Number: TW-GLAXOSMITHKLINE-TW2019APC144998

PATIENT

DRUGS (1)
  1. MEPOLIZUMAB [Suspect]
     Active Substance: MEPOLIZUMAB
     Indication: ASTHMA
     Dosage: 100 MG, Z,(Q4W) INJECTION
     Route: 058
     Dates: start: 201901

REACTIONS (3)
  - Pneumonia [Unknown]
  - Influenza [Fatal]
  - Asthma [Unknown]

NARRATIVE: CASE EVENT DATE: 20190801
